FAERS Safety Report 5623972-6 (Version None)
Quarter: 2008Q1

REPORT INFORMATION
  Report Type: 
  Country: None (occurrence: None)
  Receive Date: 20080208
  Receipt Date: 20080208
  Transmission Date: 20080703
  Serious: Yes (Hospitalization)
  Sender: FDA-Public Use
  Company Number: None

PATIENT
  Sex: Male
  Weight: 7 kg

DRUGS (3)
  1. RILUTEK [Suspect]
     Indication: SPINAL MUSCULAR ATROPHY
  2. ALBUTEROL [Concomitant]
  3. D-ALLERGY [Concomitant]

REACTIONS (1)
  - VIRAL INFECTION [None]
